FAERS Safety Report 10591309 (Version 1)
Quarter: 2014Q4

REPORT INFORMATION
  Report Type: Spontaneous
  Country: US (occurrence: US)
  Receive Date: 20141118
  Receipt Date: 20141118
  Transmission Date: 20150529
  Serious: No
  Sender: FDA-Public Use
  Company Number: US-009507513-1410USA006749

PATIENT
  Age: 44 Year
  Sex: Female

DRUGS (1)
  1. CLARITIN-D 12 HOUR [Suspect]
     Active Substance: LORATADINE\PSEUDOEPHEDRINE SULFATE
     Indication: SINUS HEADACHE
     Dosage: 5 MG, ONCE
     Route: 048

REACTIONS (4)
  - Abnormal dreams [Unknown]
  - Insomnia [Unknown]
  - Dry mouth [Unknown]
  - Psychomotor hyperactivity [Unknown]
